FAERS Safety Report 10879478 (Version 1)
Quarter: 2015Q1

REPORT INFORMATION
  Report Type: Spontaneous
  Country: US (occurrence: None)
  Receive Date: 20150224
  Receipt Date: 20150224
  Transmission Date: 20150721
  Serious: Yes (Death)
  Sender: FDA-Public Use
  Company Number: None

PATIENT
  Age: 64 Year
  Sex: Male
  Weight: 127 kg

DRUGS (9)
  1. DABIGATRAN ETEXILATE (PRADAXA) [Concomitant]
  2. CARVEDILOL CR (COREG CR) [Concomitant]
  3. CELEBREX [Concomitant]
     Active Substance: CELECOXIB
  4. IRBESARTAN. [Concomitant]
     Active Substance: IRBESARTAN
  5. CHLORTHALIDONE. [Concomitant]
     Active Substance: CHLORTHALIDONE
  6. RANITIDINE (ZANTAC) [Concomitant]
  7. PRADAXA [Suspect]
     Active Substance: DABIGATRAN ETEXILATE MESYLATE
     Indication: ATRIAL FIBRILLATION
     Route: 048
     Dates: end: 20150109
  8. ACETAMINOPHEN TAB (TYLENOL) [Concomitant]
  9. ZOLPIDEM CR (AMBIEN CR) [Concomitant]

REACTIONS (3)
  - Fall [None]
  - Femur fracture [None]
  - Cerebrovascular accident [None]

NARRATIVE: CASE EVENT DATE: 20150112
